FAERS Safety Report 26188823 (Version 1)
Quarter: 2025Q4

REPORT INFORMATION
  Report Type: Other
  Country: IL (occurrence: IL)
  Receive Date: 20251222
  Receipt Date: 20251222
  Transmission Date: 20260117
  Serious: Yes (Hospitalization)
  Sender: NOVITIUM PHARMA
  Company Number: IL-NOVITIUM PHARMA-000414

PATIENT
  Age: 61 Year
  Sex: Female

DRUGS (3)
  1. ACYCLOVIR [Suspect]
     Active Substance: ACYCLOVIR
     Indication: Necrotising retinitis
  2. PREDNISONE [Suspect]
     Active Substance: PREDNISONE
     Indication: Necrotising retinitis
     Dosage: SYSTEMIC
  3. FOSCARNET [Concomitant]
     Active Substance: FOSCARNET
     Indication: Necrotising retinitis

REACTIONS (1)
  - Drug resistance [Unknown]
